FAERS Safety Report 9411945 (Version 1)
Quarter: 2013Q2

REPORT INFORMATION
  Report Type: Spontaneous
  Country: US (occurrence: None)
  Receive Date: 20130424
  Receipt Date: 20130424
  Transmission Date: 20140414
  Serious: Yes (Other)
  Sender: FDA-Public Use
  Company Number: AUR-APL-2013-03265

PATIENT
  Age: 41 Year
  Sex: Female

DRUGS (4)
  1. TOPIRAMATE (TOPIRAMATE) [Suspect]
  2. PHENYTOIN (PHENYTOIN) [Suspect]
  3. CARBAMAZEPINE (CARBAMAZEPINE) [Suspect]
  4. FLUOXETINE (FLUOXETINE) [Concomitant]

REACTIONS (4)
  - Hallucinations, mixed [None]
  - Fall [None]
  - Stupor [None]
  - Dyskinesia [None]
